FAERS Safety Report 6512141-3 (Version None)
Quarter: 2009Q4

REPORT INFORMATION
  Report Type: 
  Country: None (occurrence: None)
  Receive Date: 20091222
  Receipt Date: 20090609
  Transmission Date: 20100525
  Serious: No
  Sender: FDA-Public Use
  Company Number: US-ASTRAZENECA-2009UW14796

PATIENT
  Age: 81 Year
  Sex: Female
  Weight: 59.9 kg

DRUGS (8)
  1. CRESTOR [Suspect]
     Route: 048
  2. CRESTOR [Suspect]
     Route: 048
  3. DIABETIC MEDICATION [Concomitant]
     Indication: DIABETES MELLITUS
  4. SYNTHROID [Concomitant]
     Indication: HYPOTHYROIDISM
  5. KLONOPIN [Concomitant]
     Indication: SLEEP DISORDER
  6. MELLARIL [Concomitant]
     Indication: NERVOUSNESS
  7. PROTONIX [Concomitant]
     Indication: GASTROOESOPHAGEAL REFLUX DISEASE
  8. NEURONTIN [Concomitant]
     Indication: NEUROPATHY PERIPHERAL

REACTIONS (1)
  - NERVOUSNESS [None]
